FAERS Safety Report 9157129 (Version 2)
Quarter: 2013Q2

REPORT INFORMATION
  Report Type: Spontaneous
  Country: IT (occurrence: IT)
  Receive Date: 20130312
  Receipt Date: 20130417
  Transmission Date: 20140414
  Serious: Yes (Life-Threatening)
  Sender: FDA-Public Use
  Company Number: IT-SANOFI-AVENTIS-2013SA021148

PATIENT
  Age: 77 Year
  Sex: Female

DRUGS (4)
  1. PLAVIX [Suspect]
     Indication: ISCHAEMIC STROKE
     Route: 048
     Dates: start: 20080101, end: 20111224
  2. DILATREND [Concomitant]
  3. TAVOR [Concomitant]
     Dosage: STRENGTH: 1 MG
     Route: 048
  4. SURMONTIL [Concomitant]

REACTIONS (5)
  - Shock haemorrhagic [Recovering/Resolving]
  - Gastric ulcer haemorrhage [Recovering/Resolving]
  - Malaise [Recovering/Resolving]
  - Femur fracture [Recovering/Resolving]
  - Fall [Recovering/Resolving]
